FAERS Safety Report 6285294-2 (Version None)
Quarter: 2009Q3

REPORT INFORMATION
  Report Type: 
  Country: None (occurrence: None)
  Receive Date: 20090716
  Receipt Date: 20080808
  Transmission Date: 20100115
  Serious: Yes (Hospitalization)
  Sender: FDA-Public Use
  Company Number: 2008BI020334

PATIENT
  Sex: Female

DRUGS (2)
  1. AVONEX [Suspect]
     Indication: MULTIPLE SCLEROSIS
     Dosage: ;IM
     Route: 030
     Dates: start: 20061101
  2. BENADRYL (CON.) [Concomitant]

REACTIONS (2)
  - INJECTION SITE URTICARIA [None]
  - MULTIPLE SCLEROSIS RELAPSE [None]
